FAERS Safety Report 9416712 (Version 1)
Quarter: 2013Q3

REPORT INFORMATION
  Report Type: Spontaneous
  Country: US (occurrence: US)
  Receive Date: 20130724
  Receipt Date: 20130724
  Transmission Date: 20140515
  Serious: Yes (Other)
  Sender: FDA-Public Use
  Company Number: US-PFIZER INC-2013214542

PATIENT
  Age: 65 Year
  Sex: Female
  Weight: 96.6 kg

DRUGS (3)
  1. INDERAL LA [Suspect]
     Indication: TREMOR
     Dosage: ONE 80 MG, DAILY (1 DF)
     Route: 048
     Dates: start: 20130503
  2. BENAZEPRIL [Concomitant]
     Indication: HYPERTENSION
     Dosage: UNK
  3. AMLODIPINE [Concomitant]
     Indication: HYPERTENSION
     Dosage: UNK

REACTIONS (3)
  - Blood pressure increased [Unknown]
  - Sinus headache [Unknown]
  - Off label use [Unknown]
